FAERS Safety Report 17442440 (Version 1)
Quarter: 2020Q1

REPORT INFORMATION
  Report Type: Spontaneous
  Country: FR (occurrence: FR)
  Receive Date: 20200220
  Receipt Date: 20200220
  Transmission Date: 20200409
  Serious: Yes (Hospitalization)
  Sender: FDA-Public Use
  Company Number: FR-009507513-2002FRA006408

PATIENT
  Age: 59 Year
  Sex: Male

DRUGS (2)
  1. ISENTRESS [Suspect]
     Active Substance: RALTEGRAVIR POTASSIUM
     Indication: HIV INFECTION
     Dosage: 800 MILLIGRAM, QD
     Route: 048
     Dates: start: 20191128, end: 20191223
  2. PIFELTRO [Suspect]
     Active Substance: DORAVIRINE
     Indication: HIV INFECTION
     Dosage: 100 MILLIGRAM, QD
     Route: 048
     Dates: start: 20191128, end: 20191223

REACTIONS (1)
  - Drug reaction with eosinophilia and systemic symptoms [Recovered/Resolved]

NARRATIVE: CASE EVENT DATE: 20191214
